FAERS Safety Report 7328514-5 (Version None)
Quarter: 2011Q1

REPORT INFORMATION
  Report Type: 
  Country: None (occurrence: None)
  Receive Date: 20110225
  Receipt Date: 20110225
  Transmission Date: 20110831
  Serious: Yes (Other)
  Sender: FDA-Public Use
  Company Number: None

PATIENT
  Sex: Male

DRUGS (2)
  1. TRAMADOL HCL [Suspect]
     Indication: ARTHRITIS
     Dosage: 1-2 Q 6 HOURS ORAL
     Route: 048
     Dates: start: 20040709, end: 20080512
  2. TRAMADOL HCL [Suspect]
     Indication: BACK PAIN
     Dosage: 1-2 Q 6 HOURS ORAL
     Route: 048
     Dates: start: 20040709, end: 20080512

REACTIONS (1)
  - SOMNOLENCE [None]
